FAERS Safety Report 9102772 (Version 3)
Quarter: 2015Q1

REPORT INFORMATION
  Report Type: Spontaneous
  Country: US (occurrence: US)
  Receive Date: 20130219
  Receipt Date: 20150313
  Transmission Date: 20150721
  Serious: Yes (Other)
  Sender: FDA-Public Use
  Company Number: US-JNJFOC-20111109175

PATIENT
  Age: 28 Year
  Sex: Male
  Weight: 98.88 kg

DRUGS (1)
  1. LISTERINE TOTAL CARE ANTICAVITY - FRESH MINT [Suspect]
     Active Substance: SODIUM FLUORIDE
     Indication: GINGIVAL DISORDER
     Route: 065
     Dates: start: 2009

REACTIONS (4)
  - Product quality issue [Unknown]
  - Tooth abscess [Unknown]
  - Teeth brittle [Not Recovered/Not Resolved]
  - Tooth injury [Not Recovered/Not Resolved]

NARRATIVE: CASE EVENT DATE: 200901
